FAERS Safety Report 10011134 (Version 2)
Quarter: 2014Q1

REPORT INFORMATION
  Report Type: Spontaneous
  Country: GB (occurrence: None)
  Receive Date: 20140312
  Receipt Date: 20140327
  Transmission Date: 20141002
  Serious: Yes (Hospitalization)
  Sender: FDA-Public Use
  Company Number: 2223499

PATIENT
  Age: 70 Year
  Sex: Female

DRUGS (3)
  1. (CARBOPLATIN) [Suspect]
     Indication: OVARIAN CANCER
     Dosage: AUC 5 (1 WEEK)
     Route: 042
     Dates: start: 20130925, end: 20131106
  2. (PACLITAXEL) [Suspect]
     Indication: OVARIAN CANCER
     Dosage: 175 MG/M 2 /SQ. METER (1 WEEK)  INTRAVENOUS (NOT OTHERWISE SPECIFIED)
     Route: 042
     Dates: start: 20130925, end: 20131106
  3. BEVACIZUMAB [Suspect]
     Indication: OVARIAN CANCER
     Dosage: (1 WEEK)
     Dates: start: 20131016, end: 20131016

REACTIONS (2)
  - Colonic abscess [None]
  - Large intestine perforation [None]
